FAERS Safety Report 5295501-0 (Version None)
Quarter: 2007Q2

REPORT INFORMATION
  Report Type: 
  Country: None (occurrence: None)
  Receive Date: 20070405
  Receipt Date: 20070330
  Transmission Date: 20071010
  Serious: Yes (Other)
  Sender: FDA-Public Use
  Company Number: CHNY2007GB00909

PATIENT
  Age: 46 Year
  Sex: Female

DRUGS (8)
  1. NICOTINE [Suspect]
     Indication: SMOKING CESSATION THERAPY
     Dosage: 21 MG, QD, TRANSDERMAL
     Route: 062
     Dates: start: 20070208, end: 20070209
  2. STEROIDS NOS [Concomitant]
  3. SERETIDE (FLUTICASONE PROPIONATE, SALMETEROL XINAFOATE) INHALER [Concomitant]
  4. SALAMOL (SALBUTAMOL) INHALER [Concomitant]
  5. OMEPRAZOLE [Concomitant]
  6. PROZAC [Concomitant]
  7. CLIMAVAL (ESTRADIOL VALERATE) [Concomitant]
  8. TOLTRADINE [Concomitant]

REACTIONS (1)
  - SWOLLEN TONGUE [None]
